FAERS Safety Report 16367015 (Version 2)
Quarter: 2019Q2

REPORT INFORMATION
  Report Type: Report from Study
  Country: US (occurrence: US)
  Receive Date: 20190529
  Receipt Date: 20190531
  Transmission Date: 20190711
  Serious: No
  Sender: FDA-Public Use
  Company Number: US-SA-2019SA142150

PATIENT
  Age: 54 Year
  Sex: Female

DRUGS (2)
  1. DUPILUMAB [Suspect]
     Active Substance: DUPILUMAB
     Indication: ECZEMA
  2. DUPILUMAB [Suspect]
     Active Substance: DUPILUMAB
     Indication: IDIOPATHIC URTICARIA
     Dosage: 600 MG, 1X
     Route: 058
     Dates: start: 20190514, end: 20190514

REACTIONS (2)
  - Product use in unapproved indication [Unknown]
  - Glossodynia [Recovered/Resolved]

NARRATIVE: CASE EVENT DATE: 201905
